FAERS Safety Report 6814549-5 (Version None)
Quarter: 2010Q3

REPORT INFORMATION
  Report Type: 
  Country: None (occurrence: None)
  Receive Date: 20100702
  Receipt Date: 20100630
  Transmission Date: 20110219
  Serious: Yes (Hospitalization, Other)
  Sender: FDA-Public Use
  Company Number: US-ROXANE LABORATORIES, INC.-2010-RO-00777RO

PATIENT
  Age: 59 Year
  Sex: Female
  Weight: 73 kg

DRUGS (10)
  1. NAPROXEN [Suspect]
     Indication: ARTHRALGIA
     Dosage: 440 MG
  2. LOSARTAN POTASSIUM AND HYDROCHLOROTHIAZIDE [Suspect]
  3. SIMVASTATIN [Suspect]
     Dosage: 5 MG
  4. DESLORATADINE [Suspect]
  5. AMOXICILLIN AND CLAVULANATE POTASSIUM [Suspect]
  6. POTASSIUM CHLORIDE [Suspect]
     Indication: HYPOKALAEMIA
  7. PHOSPHATE [Suspect]
     Indication: HYPOKALAEMIA
     Route: 048
  8. PHOSPHATE [Suspect]
     Indication: HYPONATRAEMIA
  9. NORMAL SALINE [Suspect]
     Indication: HYPOKALAEMIA
  10. NORMAL SALINE [Suspect]
     Indication: HYPONATRAEMIA

REACTIONS (9)
  - COUGH [None]
  - HYPOKALAEMIA [None]
  - HYPONATRAEMIA [None]
  - HYPOVOLAEMIA [None]
  - LOCKED-IN SYNDROME [None]
  - OSMOTIC DEMYELINATION SYNDROME [None]
  - PNEUMONIA ASPIRATION [None]
  - SINUS CONGESTION [None]
  - STAPHYLOCOCCAL SEPSIS [None]
